FAERS Safety Report 4574474-X (Version None)
Quarter: 2005Q1

REPORT INFORMATION
  Report Type: 
  Country: None (occurrence: None)
  Receive Date: 20050208
  Receipt Date: 20011102
  Transmission Date: 20050727
  Serious: No
  Sender: FDA-Public Use
  Company Number: US-GLAXOSMITHKLINE-A0355017A

PATIENT
  Age: 59 Year
  Sex: Female
  Weight: 75 kg

DRUGS (1)
  1. PAXIL [Suspect]
     Indication: DEPRESSION
     Dates: start: 20010518, end: 20010930

REACTIONS (11)
  - DIARRHOEA [None]
  - DRUG WITHDRAWAL SYNDROME [None]
  - EARLY MORNING AWAKENING [None]
  - HEADACHE [None]
  - LIBIDO DECREASED [None]
  - MALAISE [None]
  - NAUSEA [None]
  - RESTLESSNESS [None]
  - SENSORY DISTURBANCE [None]
  - TINNITUS [None]
  - TREMOR [None]
